FAERS Safety Report 5157774-4 (Version None)
Quarter: 2006Q4

REPORT INFORMATION
  Report Type: 
  Country: None (occurrence: None)
  Receive Date: 20061116
  Receipt Date: 20061101
  Transmission Date: 20070319
  Serious: Yes (Hospitalization)
  Sender: FDA-Public Use
  Company Number: 232229

PATIENT
  Age: 31 Year

DRUGS (4)
  1. AVASTIN [Suspect]
     Indication: COLON CANCER
     Dosage: 5 MG/KG, Q2W, INTRAVENOUS
     Route: 042
     Dates: start: 20060815
  2. ELOXATIN [Suspect]
     Indication: COLON CANCER
     Dosage: 85 MG/M2, Q2W, INTRAVENOUS
     Route: 042
     Dates: start: 20060815
  3. FLUOROURACIL [Suspect]
     Indication: COLON CANCER
     Dosage: SEE IMAGE
     Dates: start: 20060815
  4. LEUCOVORIN CALCIUM [Suspect]
     Indication: COLON CANCER
     Dosage: 400 MG/M2, Q2W, INTRAVENOUS
     Route: 042
     Dates: start: 20060815

REACTIONS (3)
  - CHOLECYSTITIS [None]
  - CHOLELITHIASIS [None]
  - DISEASE PROGRESSION [None]
